FAERS Safety Report 25569306 (Version 2)
Quarter: 2025Q3

REPORT INFORMATION
  Report Type: Spontaneous
  Country: US (occurrence: US)
  Receive Date: 20250716
  Receipt Date: 20250730
  Transmission Date: 20251021
  Serious: Yes (Hospitalization, Other)
  Sender: PHARMING GROUP
  Company Number: US-PHARMING-PHAUS2025001004

PATIENT

DRUGS (1)
  1. RUCONEST [Suspect]
     Active Substance: CONESTAT ALFA
     Indication: Hereditary angioedema
     Route: 042
     Dates: start: 202504

REACTIONS (4)
  - Atrial fibrillation [Recovered/Resolved]
  - Post procedural infection [Recovered/Resolved]
  - Insurance issue [Unknown]
  - Blood pressure fluctuation [Unknown]

NARRATIVE: CASE EVENT DATE: 20250604
